FAERS Safety Report 6135636-3 (Version None)
Quarter: 2009Q1

REPORT INFORMATION
  Report Type: 
  Country: None (occurrence: None)
  Receive Date: 20090327
  Receipt Date: 20080930
  Transmission Date: 20090719
  Serious: No
  Sender: FDA-Public Use
  Company Number: US-ASTRAZENECA-2008UW21087

PATIENT
  Sex: Female

DRUGS (4)
  1. ZESTRIL [Suspect]
     Route: 048
  2. VICODIN [Concomitant]
  3. AMITRIPTYLINE HYDROCHLORIDE [Concomitant]
  4. ROFECOXIB [Concomitant]

REACTIONS (2)
  - AMNESIA [None]
  - HEADACHE [None]
